FAERS Safety Report 6122926-3 (Version None)
Quarter: 2009Q1

REPORT INFORMATION
  Report Type: 
  Country: None (occurrence: None)
  Receive Date: 20090318
  Receipt Date: 20090305
  Transmission Date: 20090719
  Serious: Yes (Other)
  Sender: FDA-Public Use
  Company Number: PHEH2009US02357

PATIENT
  Sex: Female

DRUGS (6)
  1. DIOVAN [Suspect]
     Indication: HYPERTENSION
     Dosage: 80 MG, QD
     Route: 048
     Dates: start: 20080901, end: 20081001
  2. DIOVAN [Suspect]
     Dosage: 120 MG, QD
     Route: 048
     Dates: start: 20081001, end: 20081201
  3. DIOVAN [Suspect]
     Dosage: 160 MG, QD
     Route: 048
     Dates: start: 20081201, end: 20090201
  4. DIOVAN [Suspect]
     Dosage: 320 MG, QD
     Route: 048
     Dates: start: 20090201
  5. AMLODIPINE [Suspect]
     Indication: HYPERTENSION
     Dosage: 5 MG, QD
     Route: 048
     Dates: start: 20080401
  6. CYMBALTA [Concomitant]
     Indication: DEPRESSION POSTOPERATIVE
     Dosage: 30 MG, QD
     Route: 048

REACTIONS (3)
  - DRUG INEFFECTIVE [None]
  - FATIGUE [None]
  - THYROID DISORDER [None]
